FAERS Safety Report 15158653 (Version 3)
Quarter: 2018Q3

REPORT INFORMATION
  Report Type: Spontaneous
  Country: FI (occurrence: FI)
  Receive Date: 20180718
  Receipt Date: 20180820
  Transmission Date: 20181010
  Serious: Yes (Other)
  Sender: FDA-Public Use
  Company Number: FI-TEVA-2018-FI-925402

PATIENT
  Age: 69 Year
  Sex: Male

DRUGS (2)
  1. ALFUZOSIN HYDROCHLORID RATIOPHARM 10MG [Suspect]
     Active Substance: ALFUZOSIN HYDROCHLORIDE
     Dosage: 10 MILLIGRAM DAILY;
     Route: 065
  2. ALFUZOSIN HYDROCHLORID RATIOPHARM 10MG [Suspect]
     Active Substance: ALFUZOSIN HYDROCHLORIDE
     Dosage: 1 TABLET EVERY OTHER DAY FOR ONE WEEK
     Route: 065
     Dates: end: 20180810

REACTIONS (8)
  - Dizziness [Recovered/Resolved]
  - Arrhythmia [Recovered/Resolved]
  - Angina pectoris [Recovered/Resolved]
  - Abdominal discomfort [Recovered/Resolved]
  - Intentional product use issue [Unknown]
  - Fatigue [Recovered/Resolved]
  - Headache [Recovered/Resolved]
  - Dry mouth [Recovered/Resolved]

NARRATIVE: CASE EVENT DATE: 201806
